FAERS Safety Report 5483306-7 (Version None)
Quarter: 2007Q4

REPORT INFORMATION
  Report Type: 
  Country: None (occurrence: None)
  Receive Date: 20071012
  Receipt Date: 20071002
  Transmission Date: 20080405
  Serious: Yes (Other)
  Sender: FDA-Public Use
  Company Number: PHFR2007GB02603

PATIENT
  Age: 15 Year
  Sex: Male
  Weight: 73 kg

DRUGS (2)
  1. RITALIN [Suspect]
     Indication: ATTENTION DEFICIT/HYPERACTIVITY DISORDER
     Dosage: 50MG DAILY
     Route: 048
  2. RITALIN [Suspect]
     Dosage: 60MG DAILY
     Route: 048
     Dates: start: 20070101

REACTIONS (1)
  - TREMOR [None]
